FAERS Safety Report 17889637 (Version 5)
Quarter: 2021Q4

REPORT INFORMATION
  Report Type: Spontaneous
  Country: US (occurrence: US)
  Receive Date: 20200612
  Receipt Date: 20211116
  Transmission Date: 20220303
  Serious: Yes (Other)
  Sender: FDA-Public Use
  Company Number: US-PFIZER INC-2020229410

PATIENT
  Age: 64 Year
  Sex: Female

DRUGS (1)
  1. XELJANZ XR [Suspect]
     Active Substance: TOFACITINIB CITRATE
     Dosage: 11 MG

REACTIONS (7)
  - Dementia [Unknown]
  - Blindness [Unknown]
  - Cataract [Unknown]
  - Confusional state [Unknown]
  - Pain in extremity [Unknown]
  - Speech disorder developmental [Unknown]
  - Dysgraphia [Unknown]
